FAERS Safety Report 24857525 (Version 1)
Quarter: 2025Q1

REPORT INFORMATION
  Report Type: Spontaneous
  Country: US (occurrence: US)
  Receive Date: 20250117
  Receipt Date: 20250117
  Transmission Date: 20250408
  Serious: No
  Sender: PFIZER
  Company Number: US-PFIZER INC-202500008979

PATIENT
  Age: 81 Year
  Sex: Female

DRUGS (10)
  1. XELJANZ XR [Suspect]
     Active Substance: TOFACITINIB CITRATE
     Indication: Rheumatoid arthritis
     Dosage: 11 MG, DAILY
     Route: 048
  2. VITAMIN C [Concomitant]
     Active Substance: ASCORBIC ACID
  3. VITAMIN E [Concomitant]
     Active Substance: .ALPHA.-TOCOPHEROL
  4. VITAMIN D3 [Concomitant]
     Active Substance: CHOLECALCIFEROL
  5. FISH OIL [Concomitant]
     Active Substance: FISH OIL
  6. CALCIUM CITRATE\CHOLECALCIFEROL [Concomitant]
     Active Substance: CALCIUM CITRATE\CHOLECALCIFEROL
  7. LOSARTAN POTASSIUM [Concomitant]
     Active Substance: LOSARTAN POTASSIUM
  8. EVISTA [Concomitant]
     Active Substance: RALOXIFENE HYDROCHLORIDE
  9. CRESTOR [Concomitant]
     Active Substance: ROSUVASTATIN CALCIUM
  10. METHOTREXATE [Concomitant]
     Active Substance: METHOTREXATE

REACTIONS (1)
  - Condition aggravated [Not Recovered/Not Resolved]
